FAERS Safety Report 20570962 (Version 2)
Quarter: 2022Q2

REPORT INFORMATION
  Report Type: Spontaneous
  Country: US (occurrence: US)
  Receive Date: 20220309
  Receipt Date: 20220613
  Transmission Date: 20220720
  Serious: No
  Sender: FDA-Public Use
  Company Number: US-TEVA-2022-US-2008445

PATIENT
  Sex: Female

DRUGS (1)
  1. AJOVY [Suspect]
     Active Substance: FREMANEZUMAB-VFRM
     Dosage: DOSAGE 1.5   FREQUENCY MONTHLY
     Route: 065
     Dates: start: 2021

REACTIONS (4)
  - Injection site urticaria [Unknown]
  - Injection site pruritus [Unknown]
  - Urticaria [Unknown]
  - Hypersensitivity [Unknown]
